FAERS Safety Report 16548642 (Version 1)
Quarter: 2019Q3

REPORT INFORMATION
  Report Type: Spontaneous
  Country: US (occurrence: US)
  Receive Date: 20190709
  Receipt Date: 20190709
  Transmission Date: 20191004
  Serious: No
  Sender: FDA-Public Use
  Company Number: US-BAYER-2019-129249

PATIENT
  Sex: Female
  Weight: 100.68 kg

DRUGS (6)
  1. ORENITRAM [Suspect]
     Active Substance: TREPROSTINIL
     Indication: PULMONARY ARTERIAL HYPERTENSION
     Dosage: 8.0 MG, TID
     Route: 048
     Dates: start: 20190609
  2. ADEMPAS [Suspect]
     Active Substance: RIOCIGUAT
     Dosage: UNK
  3. OPSUMIT [Concomitant]
     Active Substance: MACITENTAN
  4. ADEMPAS [Suspect]
     Active Substance: RIOCIGUAT
     Dosage: UNK
  5. DILTIAZEM. [Concomitant]
     Active Substance: DILTIAZEM
  6. ORENITRAM [Suspect]
     Active Substance: TREPROSTINIL
     Indication: PULMONARY ARTERIAL HYPERTENSION
     Dosage: 8.0 MG, TID
     Route: 048
     Dates: start: 20170609

REACTIONS (8)
  - Dyspnoea [Not Recovered/Not Resolved]
  - Fatigue [Not Recovered/Not Resolved]
  - Hypotension [None]
  - Decreased appetite [None]
  - Abdominal pain upper [None]
  - Asthenia [Not Recovered/Not Resolved]
  - Weight decreased [None]
  - Nausea [None]
